FAERS Safety Report 6241028-9 (Version None)
Quarter: 2009Q2

REPORT INFORMATION
  Report Type: 
  Country: None (occurrence: None)
  Receive Date: 20090623
  Receipt Date: 20090608
  Transmission Date: 20091009
  Serious: Yes (Other)
  Sender: FDA-Public Use
  Company Number: BR-AVENTIS-200915735GDDC

PATIENT
  Age: 64 Month
  Sex: Female

DRUGS (3)
  1. ALLEGRA [Suspect]
     Indication: URTICARIA
     Dates: start: 20090601
  2. FENERGAN                           /00033001/ [Suspect]
     Indication: URTICARIA
     Route: 051
     Dates: start: 20090601, end: 20090601
  3. MULTI-VITAMINS [Concomitant]

REACTIONS (9)
  - ABDOMINAL PAIN [None]
  - ANGIOEDEMA [None]
  - BREATH SOUNDS [None]
  - HALLUCINATION [None]
  - PSYCHOMOTOR HYPERACTIVITY [None]
  - PSYCHOSOMATIC DISEASE [None]
  - TACHYCARDIA [None]
  - VOMITING [None]
  - WHEEZING [None]
